FAERS Safety Report 22849483 (Version 2)
Quarter: 2023Q4

REPORT INFORMATION
  Report Type: Spontaneous
  Country: HK (occurrence: HK)
  Receive Date: 20230822
  Receipt Date: 20231006
  Transmission Date: 20240109
  Serious: Yes (Life-Threatening, Hospitalization)
  Sender: FDA-Public Use
  Company Number: HK-BAYER-2023A106052

PATIENT
  Age: 47 Year
  Sex: Male

DRUGS (1)
  1. ULTRAVIST [Suspect]
     Active Substance: IOPROMIDE
     Indication: Computerised tomogram abdomen
     Dosage: 85 ML, ONCE WITH SALINE 14.9ML AT 94PSI MAXIMUM PRESSURE, 2ML/S (LOW-END GE SCANNER SITE)
     Dates: start: 20230726, end: 20230726

REACTIONS (5)
  - Dyspnoea [None]
  - Swelling face [None]
  - Lip swelling [None]
  - Somnolence [None]
  - Unresponsive to stimuli [None]

NARRATIVE: CASE EVENT DATE: 20230726
